FAERS Safety Report 6409676-0 (Version None)
Quarter: 2009Q4

REPORT INFORMATION
  Report Type: 
  Country: None (occurrence: None)
  Receive Date: 20091021
  Receipt Date: 20091021
  Transmission Date: 20100525
  Serious: Yes (Hospitalization)
  Sender: FDA-Public Use
  Company Number: None

PATIENT
  Age: 15 Year
  Sex: Male

DRUGS (5)
  1. LAMOTRIGINE [Suspect]
     Indication: AFFECTIVE DISORDER
     Dosage: 50MG Q12H PO
     Route: 048
     Dates: start: 20090618, end: 20090805
  2. RISPERIDONE [Concomitant]
  3. METHYLPHENIDATE HCL [Concomitant]
  4. ARIPIPRAZOLE [Concomitant]
  5. TRAZAZONE [Concomitant]

REACTIONS (1)
  - STEVENS-JOHNSON SYNDROME [None]
